FAERS Safety Report 7445528-5 (Version None)
Quarter: 2011Q2

REPORT INFORMATION
  Report Type: 
  Country: None (occurrence: None)
  Receive Date: 20110429
  Receipt Date: 20110426
  Transmission Date: 20111010
  Serious: Yes (Death, Hospitalization)
  Sender: FDA-Public Use
  Company Number: DE-SANOFI-AVENTIS-2010SA024668

PATIENT
  Age: 74 Year
  Sex: Female

DRUGS (10)
  1. BEVACIZUMAB [Suspect]
     Route: 041
     Dates: start: 20100225, end: 20100225
  2. CAPECITABINE [Suspect]
     Dosage: 7 TABLETS OF 500 MG/DAILY
     Route: 048
     Dates: start: 20100225, end: 20100310
  3. OXALIPLATIN [Suspect]
     Route: 041
     Dates: start: 20100225, end: 20100225
  4. OXALIPLATIN [Suspect]
     Route: 041
     Dates: start: 20100304, end: 20100304
  5. FLUOROURACIL [Suspect]
     Route: 041
  6. CANDESARTAN [Concomitant]
  7. ANTIHYPERTENSIVES [Concomitant]
  8. SIMVASTATIN [Concomitant]
  9. NISOLDIPINE [Concomitant]
  10. SOTALOL HCL [Concomitant]

REACTIONS (7)
  - NEUTROPENIA [None]
  - DIARRHOEA [None]
  - PULMONARY EMBOLISM [None]
  - DEHYDRATION [None]
  - VOMITING [None]
  - NAUSEA [None]
  - LEUKOPENIA [None]
